FAERS Safety Report 6873708-6 (Version None)
Quarter: 2010Q3

REPORT INFORMATION
  Report Type: 
  Country: None (occurrence: None)
  Receive Date: 20100723
  Receipt Date: 20090302
  Transmission Date: 20110219
  Serious: No
  Sender: FDA-Public Use
  Company Number: US-PFIZER INC-2009185094

PATIENT
  Age: 44 Year
  Sex: Female

DRUGS (2)
  1. CHANTIX [Suspect]
     Dosage: UNK
  2. NICOTINE [Suspect]
     Dosage: 21 MG, 1X/DAY
     Dates: start: 20090302

REACTIONS (5)
  - ASTHENIA [None]
  - DIZZINESS [None]
  - HEADACHE [None]
  - MALAISE [None]
  - NIGHTMARE [None]
